FAERS Safety Report 8842140 (Version 1)
Quarter: 2012Q4

REPORT INFORMATION
  Report Type: 
  Country: BR (occurrence: BR)
  Receive Date: 20121016
  Receipt Date: 20121016
  Transmission Date: 20130627
  Serious: Yes (Other)
  Sender: FDA-Public Use
  Company Number: PHHY2012BR090753

PATIENT
  Age: 4 Year
  Sex: Female

DRUGS (4)
  1. TEGRETOL [Suspect]
     Indication: CONVULSION
     Dosage: 2% 100 ml, UNK
     Route: 048
  2. TRILEPTAL [Suspect]
     Indication: CONVULSION
     Dosage: 6% 100 ml, 12 hrly
     Route: 048
  3. TRILEPTAL [Suspect]
     Dosage: 7 ml, (12 to 12 hours)
     Route: 048
  4. DEPAKENE [Suspect]
     Indication: CONVULSION
     Dosage: 2.5 ml, twice or three times a day
     Route: 048

REACTIONS (7)
  - Breast mass [Not Recovered/Not Resolved]
  - Hypersensitivity [Unknown]
  - Blister [Unknown]
  - Rash generalised [Unknown]
  - Pallor [Unknown]
  - Presyncope [Unknown]
  - Malaise [Unknown]
